FAERS Safety Report 6852914-0 (Version None)
Quarter: 2010Q3

REPORT INFORMATION
  Report Type: 
  Country: None (occurrence: None)
  Receive Date: 20100717
  Receipt Date: 20071123
  Transmission Date: 20110219
  Serious: No
  Sender: FDA-Public Use
  Company Number: US-PFIZER INC-2007101095

PATIENT
  Sex: Female
  Weight: 45.4 kg

DRUGS (8)
  1. CHANTIX [Suspect]
     Indication: SMOKING CESSATION THERAPY
     Dates: start: 20071026, end: 20071121
  2. NORTRIPTYLINE [Concomitant]
  3. TIZANIDINE HCL [Concomitant]
     Indication: SURGERY
  4. ESTRADIOL [Concomitant]
  5. THYROID TAB [Concomitant]
  6. ALPRAZOLAM [Concomitant]
     Indication: NERVOUSNESS
  7. ALPRAZOLAM [Concomitant]
     Indication: ABDOMINAL DISCOMFORT
  8. NEXIUM [Concomitant]
     Indication: GASTROOESOPHAGEAL REFLUX DISEASE

REACTIONS (1)
  - GASTROOESOPHAGEAL REFLUX DISEASE [None]
